FAERS Safety Report 4506763-9 (Version None)
Quarter: 2004Q4

REPORT INFORMATION
  Report Type: 
  Country: None (occurrence: None)
  Receive Date: 20041117
  Receipt Date: 20041104
  Transmission Date: 20050328
  Serious: No
  Sender: FDA-Public Use
  Company Number: 2004UW22782

PATIENT
  Age: 39 Year
  Sex: Male
  Weight: 41.276 kg

DRUGS (2)
  1. SEROQUEL [Suspect]
     Indication: EATING DISORDER
     Dosage: 50 MG PO
     Route: 048
  2. SEROQUEL [Suspect]
     Indication: OBSESSIVE-COMPULSIVE DISORDER
     Dosage: 50 MG PO
     Route: 048

REACTIONS (3)
  - MYDRIASIS [None]
  - MYOPIA [None]
  - NERVOUSNESS [None]
